FAERS Safety Report 8916453 (Version 3)
Quarter: 2014Q1

REPORT INFORMATION
  Report Type: Spontaneous
  Country: US (occurrence: US)
  Receive Date: 20121120
  Receipt Date: 20140314
  Transmission Date: 20141002
  Serious: Yes (Hospitalization, Other)
  Sender: FDA-Public Use
  Company Number: US-BAYER-2012-120006

PATIENT
  Age: 22 Year
  Sex: Female
  Weight: 45.81 kg

DRUGS (15)
  1. YAZ [Suspect]
     Dosage: UNK
     Dates: start: 20100124, end: 20111208
  2. MARIJUANA [Concomitant]
     Indication: APPETITE DISORDER
  3. MARIJUANA [Concomitant]
     Indication: PAIN
  4. AMPHETAMINE SALTS [Concomitant]
     Indication: APPETITE DISORDER
  5. AMPHETAMINE SALTS [Concomitant]
     Indication: PAIN
  6. ACYCLOVIR [ACICLOVIR] [Concomitant]
     Dosage: 400 MG, TAKE ? TABLET
     Route: 048
     Dates: start: 20091207
  7. OXYCODONE/APAP [Concomitant]
     Dosage: 5-325. TAKE 1 TO 2 TABLET EVERY 4 TO 6 HOURS
     Route: 048
     Dates: start: 20091207
  8. CLINDAMYCIN [Concomitant]
     Dosage: 150 MG, TAKE 4 CAPSULES
     Route: 048
     Dates: start: 20091221
  9. HYDROCODONE W/ACETAMINOPHEN [Concomitant]
     Indication: PAIN
     Dosage: UNK UNK, QID
     Route: 048
     Dates: start: 20100120
  10. METRONIDAZOLE [Concomitant]
     Dosage: 500 MG, 1 TABLET
     Route: 048
     Dates: start: 20100120
  11. DOXYCYCLINE HYCLATE [Concomitant]
     Dosage: 100 MG, BID
     Route: 048
     Dates: start: 20100120
  12. IBUPROFEN [Concomitant]
     Dosage: 80 MG, TID
     Route: 048
     Dates: start: 20100216
  13. NAPROXEN [Concomitant]
     Dosage: 500 MG, TWO TO THREE TIMES DAILY
     Route: 048
     Dates: start: 20100226
  14. PROMETHAZINE [Concomitant]
     Indication: NAUSEA
     Dosage: 25 MG, BID
     Route: 048
     Dates: start: 20100228
  15. OMEPRAZOL [Concomitant]
     Dosage: 1 CAPSULE TWICE A DAY FOR 1 WEEK THEN EVERY MORNING
     Route: 048
     Dates: start: 20100228

REACTIONS (9)
  - Cholecystitis chronic [None]
  - Cholecystectomy [None]
  - Pain [None]
  - Injury [None]
  - General physical health deterioration [None]
  - Anxiety [None]
  - Anhedonia [None]
  - Emotional distress [None]
  - Pain [None]
